FAERS Safety Report 9146752 (Version 1)
Quarter: 2013Q1

REPORT INFORMATION
  Report Type: Spontaneous
  Country: US (occurrence: None)
  Receive Date: 20130207
  Receipt Date: 20130207
  Transmission Date: 20140127
  Serious: Yes (Death)
  Sender: FDA-Public Use
  Company Number: 2013010210

PATIENT
  Age: 45 Year
  Sex: Female

DRUGS (12)
  1. ZOLPIDEM [Suspect]
     Route: 048
  2. HYDROMORPHONE [Suspect]
     Route: 048
  3. HYDROXYZINE (HYDROXYZINE) [Suspect]
     Route: 048
  4. GABAPENTIN (GABAPENTIN) [Suspect]
     Route: 048
  5. MIRTAZAPINE (MIRTAZAPINE) [Suspect]
     Route: 048
  6. DIPHENHYDRAMINE [Suspect]
     Route: 048
  7. DEXTROMETHORPHAN [Suspect]
     Route: 048
  8. PROMETHAZINE (PROMETHAZINE) [Suspect]
     Route: 048
  9. FLUOXETINE [Suspect]
     Route: 048
  10. ACETAMINOPHEN/HYDROCODONE (ACETAMINOPHEN, HYDROCODONE) [Suspect]
     Route: 048
  11. ALPRAZOLAM (ALPRAZOLAM) [Suspect]
     Route: 048
  12. LORAZEPAM (LORAZEPAM) [Suspect]
     Route: 048

REACTIONS (3)
  - Drug abuse [None]
  - Cardiac arrest [None]
  - Respiratory arrest [None]
